FAERS Safety Report 20354126 (Version 1)
Quarter: 2022Q1

REPORT INFORMATION
  Report Type: Spontaneous
  Country: DK (occurrence: DK)
  Receive Date: 20220120
  Receipt Date: 20220120
  Transmission Date: 20220424
  Serious: Yes (Death, Other)
  Sender: FDA-Public Use
  Company Number: DK-CELLTRION INC.-2022DK000464

PATIENT

DRUGS (7)
  1. RITUXIMAB [Suspect]
     Active Substance: RITUXIMAB
     Indication: Scleritis
     Dosage: 1000 MG, Q2W
     Route: 041
  2. CASPOFUNGIN [Suspect]
     Active Substance: CASPOFUNGIN
     Indication: Pneumocystis jirovecii pneumonia
     Dosage: UNK
     Route: 065
  3. SULFAMETHOXAZOLE AND TRIMETHOPRIM [Suspect]
     Active Substance: SULFAMETHOXAZOLE\TRIMETHOPRIM
     Indication: Pneumocystis jirovecii pneumonia
     Dosage: 4 DF, QD (TRIMETHOPRIM/SULFAMETHOXAZOLE: 160/800 MG FOUR TIMES DAILY)
     Route: 065
  4. PREDNISOLONE [Suspect]
     Active Substance: PREDNISOLONE
     Indication: Scleritis
     Dosage: 100 MG, QD
     Route: 048
  5. PREDNISOLONE [Suspect]
     Active Substance: PREDNISOLONE
     Dosage: 30 MG, QD
     Route: 048
  6. METHYLPREDNISOLONE [Suspect]
     Active Substance: METHYLPREDNISOLONE
     Indication: Scleritis
     Dosage: 1000 MG, QD
     Route: 042
  7. RANIBIZUMAB [Suspect]
     Active Substance: RANIBIZUMAB
     Indication: Age-related macular degeneration
     Dosage: UNK
     Route: 065

REACTIONS (23)
  - Anuria [Fatal]
  - Cerebral disorder [Fatal]
  - Chronic kidney disease [Fatal]
  - Coma [Fatal]
  - Pneumothorax [Fatal]
  - Scleritis [Fatal]
  - Hypoxia [Fatal]
  - Myocardial infarction [Fatal]
  - Pneumocystis jirovecii pneumonia [Fatal]
  - Respiratory failure [Fatal]
  - Drug ineffective [Fatal]
  - Treatment failure [Fatal]
  - Conjunctival hyperaemia [Unknown]
  - Conjunctival oedema [Unknown]
  - Eye pain [Unknown]
  - Orbital haemorrhage [Unknown]
  - Paranasal sinus mucosal hypertrophy [Unknown]
  - Periorbital oedema [Unknown]
  - Retinal oedema [Unknown]
  - Visual acuity reduced [Unknown]
  - Vision blurred [Unknown]
  - Pyrexia [Unknown]
  - Off label use [Unknown]
